FAERS Safety Report 17982481 (Version 1)
Quarter: 2020Q3

REPORT INFORMATION
  Report Type: Spontaneous
  Country: US (occurrence: US)
  Receive Date: 20200702
  Receipt Date: 20200702
  Transmission Date: 20201103
  Serious: No
  Sender: FDA-Public Use
  Company Number: None

PATIENT
  Age: 35 Year
  Sex: Male
  Weight: 83.25 kg

DRUGS (1)
  1. ONDANSETRON [Suspect]
     Active Substance: ONDANSETRON
     Dosage: ?          QUANTITY:12 TABLET(S);?
     Route: 048
     Dates: start: 20200629, end: 20200702

REACTIONS (3)
  - Vision blurred [None]
  - Paraesthesia [None]
  - Disturbance in attention [None]

NARRATIVE: CASE EVENT DATE: 20200702
